FAERS Safety Report 7548119-0 (Version None)
Quarter: 2011Q2

REPORT INFORMATION
  Report Type: 
  Country: None (occurrence: None)
  Receive Date: 20110615
  Receipt Date: 20110607
  Transmission Date: 20111010
  Serious: Yes (Hospitalization, Other)
  Sender: FDA-Public Use
  Company Number: SE-NOVOPROD-321981

PATIENT
  Age: 61 Year
  Sex: Male
  Weight: 101 kg

DRUGS (11)
  1. ATACAND HCT [Concomitant]
     Dosage: 16MG/12.5MG, QD
     Dates: start: 20081216
  2. CRESTOR [Concomitant]
     Dosage: 20 MG, QD
     Dates: start: 20081216
  3. ENALAPRIL MALEATE [Concomitant]
     Dosage: 5 MG, QD
  4. NITROMEX [Concomitant]
     Dosage: 0.5 MG, QD
     Dates: start: 20021128
  5. VICTOZA [Suspect]
     Indication: TYPE 2 DIABETES MELLITUS
     Dosage: 0.6 MG, QD
     Route: 065
     Dates: start: 20101201, end: 20101215
  6. VICTOZA [Suspect]
     Dosage: 1.2 MG, QD
     Route: 065
     Dates: start: 20101216, end: 20101223
  7. TROMBYL [Concomitant]
     Dosage: 75 MG, QD
     Dates: start: 20020320
  8. METFORMIN HCL [Concomitant]
     Dosage: 3000 MG, QD
     Dates: start: 20030225
  9. ALFUZOSIN HCL [Concomitant]
     Dosage: 10 MG, QD
     Dates: start: 20061222
  10. AMLODIPINE BESYLATE [Concomitant]
     Dosage: 5 MG, QD
     Dates: start: 20081216
  11. MINDIAB [Concomitant]
     Dosage: 5 MG, QD
     Dates: start: 20020320

REACTIONS (3)
  - NAUSEA [None]
  - CONSTIPATION [None]
  - GASTRIC ULCER [None]
